FAERS Safety Report 24279141 (Version 1)
Quarter: 2024Q3

REPORT INFORMATION
  Report Type: Spontaneous
  Country: US (occurrence: None)
  Receive Date: 20240830
  Receipt Date: 20240830
  Transmission Date: 20241017
  Serious: Yes (Other)
  Sender: Public
  Company Number: None

PATIENT
  Age: 59 Year
  Sex: Male
  Weight: 80.1 kg

DRUGS (17)
  1. SULFAMETHOXAZOLE\TRIMETHOPRIM [Suspect]
     Active Substance: SULFAMETHOXAZOLE\TRIMETHOPRIM
     Indication: Antibiotic prophylaxis
     Dosage: 1 TABLET TWICE A DAY ORAL ?
     Route: 048
     Dates: start: 20240817, end: 20240820
  2. Penial Implant [Concomitant]
  3. MYRBETRIQ [Concomitant]
     Active Substance: MIRABEGRON
  4. Vitamin D [Concomitant]
  5. LISINOPRIL [Concomitant]
  6. SERTRALINE [Concomitant]
  7. Ducasate [Concomitant]
  8. TOPIRAMATE [Concomitant]
  9. Levothroxine [Concomitant]
  10. GEMFIBROZIL [Concomitant]
  11. ATORVASTATIN [Concomitant]
  12. SILDENAFIL [Concomitant]
  13. QUETIAPINE [Concomitant]
  14. FINASTERIDE [Concomitant]
     Active Substance: FINASTERIDE
  15. MINOXIDIL [Concomitant]
  16. Tretinion [Concomitant]
  17. GABAPENTIN [Concomitant]

REACTIONS (10)
  - Erythema [None]
  - Pain [None]
  - Swelling [None]
  - Hypersensitivity [None]
  - Blister [None]
  - Skin exfoliation [None]
  - Pyuria [None]
  - Genital infection [None]
  - Oropharyngeal pain [None]
  - Wheezing [None]

NARRATIVE: CASE EVENT DATE: 20240819
